FAERS Safety Report 9495256 (Version 2)
Quarter: 2013Q3

REPORT INFORMATION
  Report Type: Spontaneous
  Country: CN (occurrence: CN)
  Receive Date: 20130903
  Receipt Date: 20130905
  Transmission Date: 20140515
  Serious: Yes (Life-Threatening)
  Sender: FDA-Public Use
  Company Number: CN-JHP PHARMACEUTICALS, LLC-JHP201300524

PATIENT
  Age: 35 Year
  Sex: Female

DRUGS (1)
  1. PITOCIN [Suspect]
     Indication: LABOUR INDUCTION
     Dosage: UNK
     Dates: start: 20130207, end: 20130207

REACTIONS (4)
  - Disseminated intravascular coagulation [Recovered/Resolved]
  - Shock haemorrhagic [Recovered/Resolved]
  - Postpartum haemorrhage [Recovered/Resolved]
  - Exposure during pregnancy [Recovered/Resolved]
